FAERS Safety Report 8980619 (Version 1)
Quarter: 2012Q4

REPORT INFORMATION
  Report Type: 
  Country: FR (occurrence: FR)
  Receive Date: 20121221
  Receipt Date: 20121221
  Transmission Date: 20130627
  Serious: Yes (Hospitalization)
  Sender: FDA-Public Use
  Company Number: PHHO2012FR017773

PATIENT
  Age: 48 Year
  Sex: Male
  Weight: 69 kg

DRUGS (7)
  1. AFINITOR [Suspect]
     Dosage: 10 mg /day
     Dates: start: 20120924
  2. FRAGMINE [Concomitant]
     Indication: VENA CAVA THROMBOSIS
     Dosage: 15000 U, UNK
     Route: 058
     Dates: start: 20120905
  3. TRAMADOL [Concomitant]
     Dosage: 100 mg, UNK
     Route: 048
     Dates: start: 20120904
  4. DOLIPRANE [Concomitant]
     Indication: MIGRAINE WITH AURA
     Dosage: 1000 mg, UNK
     Dates: start: 20120905
  5. HAVLANE [Concomitant]
     Indication: INSOMNIA
     Dosage: 1 mg, UNK
     Dates: start: 20120914
  6. INIPOMP [Concomitant]
     Indication: GASTROOESOPHAGEAL REFLUX DISEASE
     Dosage: 20 mg, UNK
     Dates: start: 20120914
  7. KLIPAL CODEINE [Concomitant]
     Indication: MIGRAINE WITH AURA
     Dosage: 300/25 mg
     Dates: start: 20120929

REACTIONS (2)
  - Haematuria [Recovered/Resolved]
  - Urinary retention [Recovered/Resolved]
